FAERS Safety Report 22195752 (Version 1)
Quarter: 2023Q2

REPORT INFORMATION
  Report Type: Other
  Country: CA (occurrence: CA)
  Receive Date: 20230411
  Receipt Date: 20230411
  Transmission Date: 20230721
  Serious: Yes (Congenital Anomaly, Other)
  Sender: FDA-Public Use
  Company Number: CA-APOTEX-2023AP006474

PATIENT
  Sex: Male
  Weight: 3 kg

DRUGS (4)
  1. EMTRICITABINE\TENOFOVIR [Suspect]
     Active Substance: EMTRICITABINE\TENOFOVIR
     Indication: HIV infection
     Dosage: 500 MILLIGRAM, QD
     Route: 064
  2. ISENTRESS [Suspect]
     Active Substance: RALTEGRAVIR POTASSIUM
     Indication: HIV infection
     Dosage: UNK, BID
     Route: 064
  3. ISENTRESS [Suspect]
     Active Substance: RALTEGRAVIR POTASSIUM
     Dosage: UNK, QD
     Route: 064
  4. TRUVADA [Suspect]
     Active Substance: EMTRICITABINE\TENOFOVIR DISOPROXIL FUMARATE
     Indication: HIV infection
     Dosage: 500 MILLIGRAM, QD
     Route: 064

REACTIONS (5)
  - Hypothermia neonatal [Recovered/Resolved]
  - Hypotonia neonatal [Recovered/Resolved]
  - Nasal septum disorder [Recovered/Resolved]
  - Pallor [Recovered/Resolved]
  - Foetal exposure during pregnancy [Recovered/Resolved]
